FAERS Safety Report 18298246 (Version 2)
Quarter: 2020Q4

REPORT INFORMATION
  Report Type: Spontaneous
  Country: US (occurrence: US)
  Receive Date: 20200922
  Receipt Date: 20201008
  Transmission Date: 20210113
  Serious: Yes (Hospitalization)
  Sender: FDA-Public Use
  Company Number: US-EPIC PHARMA LLC-2020EPC00280

PATIENT
  Sex: Male
  Weight: 99.77 kg

DRUGS (14)
  1. SERTRALINE [Suspect]
     Active Substance: SERTRALINE HYDROCHLORIDE
     Dosage: UNK
     Dates: start: 2012, end: 2017
  2. AMLODIPINE [Concomitant]
     Active Substance: AMLODIPINE BESYLATE
  3. OXYMORPHONE [Suspect]
     Active Substance: OXYMORPHONE
     Indication: BACK PAIN
     Dosage: UNK
     Route: 048
     Dates: start: 2012, end: 2017
  4. OXYMORPHONE [Suspect]
     Active Substance: OXYMORPHONE
     Indication: ARTHRITIS
  5. OXYMORPHONE HCL ER [Suspect]
     Active Substance: OXYMORPHONE HYDROCHLORIDE
  6. OXYMORPHONE [Suspect]
     Active Substance: OXYMORPHONE
     Indication: BACK PAIN
     Dosage: UNK
     Route: 048
     Dates: start: 2012, end: 2017
  7. OXYMORPHONE [Suspect]
     Active Substance: OXYMORPHONE
     Indication: ARTHRITIS
  8. LORAZEPAM. [Suspect]
     Active Substance: LORAZEPAM
     Dosage: UNK
     Dates: start: 2012, end: 2017
  9. TRAMADOL. [Suspect]
     Active Substance: TRAMADOL
  10. CRESTOR [Concomitant]
     Active Substance: ROSUVASTATIN CALCIUM
  11. UNSPECIFIED CHOLESTEROL MEDICATION [Concomitant]
     Active Substance: UNSPECIFIED INGREDIENT
  12. CLONIDINE. [Concomitant]
     Active Substance: CLONIDINE
  13. OPANA [Suspect]
     Active Substance: OXYMORPHONE HYDROCHLORIDE
  14. UNSPECIFIED BLOOD PRESSURE MEDICATION [Concomitant]
     Active Substance: UNSPECIFIED INGREDIENT

REACTIONS (8)
  - Lethargy [Recovering/Resolving]
  - Intestinal obstruction [Recovered/Resolved]
  - Apathy [Recovering/Resolving]
  - Confusional state [Recovering/Resolving]
  - Somnolence [Recovering/Resolving]
  - Withdrawal syndrome [Recovered/Resolved]
  - Asthenia [Recovering/Resolving]
  - Fatigue [Recovering/Resolving]
